FAERS Safety Report 15815519 (Version 2)
Quarter: 2019Q1

REPORT INFORMATION
  Report Type: Report from Study
  Country: DE (occurrence: DE)
  Receive Date: 20190112
  Receipt Date: 20190313
  Transmission Date: 20190417
  Serious: Yes (Hospitalization)
  Sender: FDA-Public Use
  Company Number: PHHO2019DE000660

PATIENT
  Age: 42 Year
  Sex: Female
  Weight: 97 kg

DRUGS (5)
  1. L THYROX [Concomitant]
     Active Substance: LEVOTHYROXINE SODIUM
     Indication: HYPOTHYROIDISM
     Dosage: 100 MG, QD
     Route: 048
  2. IBUFLAM [Concomitant]
     Active Substance: IBUPROFEN
     Indication: NECK PAIN
     Dosage: 600 MG, PRN
     Route: 048
  3. AIN457 [Suspect]
     Active Substance: SECUKINUMAB
     Indication: PSORIASIS
     Dosage: 300 MG, UNK
     Route: 058
     Dates: start: 20180606
  4. AMLODIPINE [Concomitant]
     Active Substance: AMLODIPINE BESYLATE
     Indication: HYPERTENSION
     Dosage: 5 MG, QD
     Route: 048
  5. IBUFLAM [Concomitant]
     Active Substance: IBUPROFEN
     Indication: BACK PAIN

REACTIONS (2)
  - Vestibular neuronitis [Recovered/Resolved]
  - Otitis media [Recovered/Resolved]

NARRATIVE: CASE EVENT DATE: 20181214
